FAERS Safety Report 4378988-7 (Version None)
Quarter: 2004Q2

REPORT INFORMATION
  Report Type: 
  Country: None (occurrence: None)
  Receive Date: 20040601
  Receipt Date: 20040319
  Transmission Date: 20050107
  Serious: No
  Sender: FDA-Public Use
  Company Number: WAES 0403USA01903

PATIENT
  Sex: Male

DRUGS (6)
  1. ZETIA [Suspect]
     Indication: BLOOD CHOLESTEROL INCREASED
     Dosage: 10 MG/QOD/PO
     Route: 048
     Dates: start: 20040305
  2. FLONASE [Concomitant]
  3. LASIX [Concomitant]
  4. INSULIN [Concomitant]
  5. LISINOPRIL [Concomitant]
  6. NIACIN [Concomitant]

REACTIONS (1)
  - INSULIN RESISTANCE [None]
